FAERS Safety Report 6553675-5 (Version None)
Quarter: 2010Q1

REPORT INFORMATION
  Report Type: 
  Country: None (occurrence: None)
  Receive Date: 20100127
  Receipt Date: 20100114
  Transmission Date: 20100710
  Serious: Yes (Hospitalization, Other)
  Sender: FDA-Public Use
  Company Number: PHHY2010BR02249

PATIENT
  Age: 55 Year
  Sex: Female

DRUGS (1)
  1. ACLASTA [Suspect]
     Indication: OSTEOPOROSIS
     Dosage: 5 MG/100ML ANNUALLY
     Route: 042
     Dates: start: 20091101

REACTIONS (6)
  - GAIT DISTURBANCE [None]
  - INFECTION [None]
  - PAIN [None]
  - PAIN IN EXTREMITY [None]
  - PARAESTHESIA [None]
  - PYREXIA [None]
